FAERS Safety Report 9112272 (Version 1)
Quarter: 2013Q1

REPORT INFORMATION
  Report Type: Spontaneous
  Country: US (occurrence: US)
  Receive Date: 20130219
  Receipt Date: 20130219
  Transmission Date: 20140127
  Serious: No
  Sender: FDA-Public Use
  Company Number: US-BRISTOL-MYERS SQUIBB COMPANY-16367476

PATIENT
  Age: 67 Year
  Sex: Female

DRUGS (4)
  1. ORENCIA [Suspect]
     Indication: RHEUMATOID ARTHRITIS
     Dosage: SECOND INFUSION ON 12 DEC 2011
     Route: 042
     Dates: start: 20111128, end: 20120327
  2. LYRICA [Concomitant]
  3. CYMBALTA [Concomitant]
  4. PLAQUENIL [Concomitant]

REACTIONS (5)
  - Viral infection [Unknown]
  - Musculoskeletal pain [Unknown]
  - Diarrhoea [Unknown]
  - Tooth infection [Unknown]
  - Sinusitis [Unknown]
